FAERS Safety Report 4665015-7 (Version None)
Quarter: 2005Q2

REPORT INFORMATION
  Report Type: 
  Country: None (occurrence: None)
  Receive Date: 20050517
  Receipt Date: 20050503
  Transmission Date: 20051028
  Serious: Yes (Other)
  Sender: FDA-Public Use
  Company Number: GBS050517298

PATIENT
  Age: 62 Year
  Sex: Female
  Weight: 72 kg

DRUGS (8)
  1. CYMBALTA [Suspect]
     Indication: URINARY INCONTINENCE
     Dosage: 40 MG
     Dates: start: 20041101
  2. ONDANSETRON [Concomitant]
  3. FENTANYL [Concomitant]
  4. PROPOFOL [Concomitant]
  5. SUXAMETHONIUM [Concomitant]
  6. ATRACURIUM [Concomitant]
  7. DESFLURANE [Concomitant]
  8. CEFUROXIME [Concomitant]

REACTIONS (3)
  - ANAPHYLACTIC REACTION [None]
  - DRUG INTERACTION [None]
  - PROCEDURAL HYPOTENSION [None]
